FAERS Safety Report 8347926-4 (Version None)
Quarter: 2012Q2

REPORT INFORMATION
  Report Type: 
  Country: None (occurrence: None)
  Receive Date: 20120509
  Receipt Date: 20120424
  Transmission Date: 20120825
  Serious: Yes (Other)
  Sender: FDA-Public Use
  Company Number: IT-WATSON-2012-07443

PATIENT
  Age: 44 Year
  Sex: Female
  Weight: 46 kg

DRUGS (6)
  1. FLUMAZENIL (UNKNOWN) [Suspect]
     Indication: DRUG DETOXIFICATION
     Dosage: 0.5 MG, DAILY
     Route: 042
  2. CLONAZEPAM [Suspect]
     Indication: DRUG DETOXIFICATION
     Dosage: UNK
     Route: 065
  3. LORMETAZEPAM [Suspect]
     Indication: DEPRESSION
     Dosage: 50 MG, DAILY
  4. LORAZEPAM [Suspect]
     Indication: DEPRESSION
     Dosage: 2 MG, DAILY
     Route: 065
  5. LORAZEPAM [Suspect]
     Indication: DRUG ABUSE
  6. VALPROATE SODIUM [Suspect]
     Indication: CONVULSION
     Dosage: 500 MG, BID
     Route: 065

REACTIONS (3)
  - DRUG DEPENDENCE [None]
  - PARTIAL SEIZURES [None]
  - DRUG WITHDRAWAL SYNDROME [None]
